FAERS Safety Report 5129591-2 (Version None)
Quarter: 2006Q4

REPORT INFORMATION
  Report Type: 
  Country: None (occurrence: None)
  Receive Date: 20061012
  Receipt Date: 20060929
  Transmission Date: 20070319
  Serious: Yes (Hospitalization)
  Sender: FDA-Public Use
  Company Number: 2005171160

PATIENT
  Age: 69 Year
  Sex: Female
  Weight: 56.6996 kg

DRUGS (6)
  1. SUTENT [Suspect]
     Indication: METASTATIC RENAL CELL CARCINOMA
     Dosage: 50 MG (50 MG, QD X 28 DAYS FOLLOWED BY 14 DAYS REST), ORAL
     Route: 048
     Dates: start: 20051201, end: 20051219
  2. LASIX [Concomitant]
  3. COREG [Concomitant]
  4. FOLIC ACID [Concomitant]
  5. ALTACE [Concomitant]
  6. MULTIVITAMIN [Concomitant]

REACTIONS (3)
  - BRONCHITIS [None]
  - CARDIAC FAILURE CONGESTIVE [None]
  - DISEASE RECURRENCE [None]
